FAERS Safety Report 16307113 (Version 2)
Quarter: 2019Q2

REPORT INFORMATION
  Report Type: Spontaneous
  Country: US (occurrence: US)
  Receive Date: 20190513
  Receipt Date: 20190521
  Transmission Date: 20190711
  Serious: Yes (Other)
  Sender: FDA-Public Use
  Company Number: US-DRREDDYS-USA/USA/19/0110124

PATIENT
  Age: 76 Year
  Sex: Male

DRUGS (10)
  1. QUETIAPINE FUMARATE TABLETS [Suspect]
     Active Substance: QUETIAPINE FUMARATE
     Indication: DEMENTIA
     Dosage: Q AM (MORNING)
     Route: 065
  2. QUETIAPINE FUMARATE TABLETS [Suspect]
     Active Substance: QUETIAPINE FUMARATE
     Indication: NEUROPSYCHIATRIC SYMPTOMS
     Dosage: Q AM (MORNING)
     Route: 065
  3. QUETIAPINE FUMARATE TABLETS [Suspect]
     Active Substance: QUETIAPINE FUMARATE
     Dosage: MID-DAY
     Route: 065
  4. QUETIAPINE FUMARATE TABLETS [Suspect]
     Active Substance: QUETIAPINE FUMARATE
     Dosage: Q PM (NIGHT)
     Route: 065
  5. QUETIAPINE FUMARATE TABLETS [Suspect]
     Active Substance: QUETIAPINE FUMARATE
     Dosage: Q PM (NIGHT)
     Route: 065
  6. LEVODOPA, CARBIDOPA [Concomitant]
     Active Substance: CARBIDOPA\LEVODOPA
     Indication: PRODUCT USED FOR UNKNOWN INDICATION
     Dosage: LEVODOPA/CARBIDOPA (LD/CD) 25/100, 2 TAB TID.
     Route: 048
  7. RISPERIDONE. [Suspect]
     Active Substance: RISPERIDONE
     Indication: AGGRESSION
     Route: 065
  8. QUETIAPINE FUMARATE TABLETS [Suspect]
     Active Substance: QUETIAPINE FUMARATE
     Dosage: MID-DAY
     Route: 065
  9. QUETIAPINE FUMARATE TABLETS [Suspect]
     Active Substance: QUETIAPINE FUMARATE
     Dosage: Q PM (NIGHT)
     Route: 065
  10. QUETIAPINE FUMARATE TABLETS [Suspect]
     Active Substance: QUETIAPINE FUMARATE
     Dosage: Q AM (MORNING)
     Route: 065

REACTIONS (5)
  - Delirium [Recovering/Resolving]
  - Slow response to stimuli [Unknown]
  - Cogwheel rigidity [Recovering/Resolving]
  - Depressed level of consciousness [Recovering/Resolving]
  - Somnolence [Unknown]
